FAERS Safety Report 6482695-4 (Version None)
Quarter: 2009Q4

REPORT INFORMATION
  Report Type: 
  Country: None (occurrence: None)
  Receive Date: 20091209
  Receipt Date: 20091130
  Transmission Date: 20100525
  Serious: Yes (Death)
  Sender: FDA-Public Use
  Company Number: US-BAYER-200941874NA

PATIENT
  Sex: Female

DRUGS (2)
  1. YAZ [Suspect]
     Indication: ACNE
     Route: 048
     Dates: end: 20091019
  2. CLARAVIS [Suspect]
     Indication: ACNE
     Route: 048
     Dates: end: 20091019

REACTIONS (2)
  - COMPLETED SUICIDE [None]
  - DEPRESSION SUICIDAL [None]
